FAERS Safety Report 6700627-8 (Version None)
Quarter: 2010Q2

REPORT INFORMATION
  Report Type: 
  Country: None (occurrence: None)
  Receive Date: 20100428
  Receipt Date: 20100414
  Transmission Date: 20101027
  Serious: Yes (Hospitalization)
  Sender: FDA-Public Use
  Company Number: PHHY2008JP06489

PATIENT
  Age: 24 Year
  Sex: Female

DRUGS (2)
  1. NEORAL [Suspect]
     Indication: BEHCET'S SYNDROME
     Dosage: 200 MG, UNK
     Route: 048
     Dates: start: 20070501, end: 20080417
  2. PREDNISOLONE [Concomitant]
     Indication: HISTIOCYTOSIS HAEMATOPHAGIC
     Dosage: UNK
     Dates: start: 20050701

REACTIONS (7)
  - BEHCET'S SYNDROME [None]
  - COMA [None]
  - DRUG LEVEL INCREASED [None]
  - RENAL IMPAIRMENT [None]
  - REVERSIBLE POSTERIOR LEUKOENCEPHALOPATHY SYNDROME [None]
  - TONIC CONVULSION [None]
  - VISUAL ACUITY REDUCED [None]
